FAERS Safety Report 7667165-X (Version None)
Quarter: 2011Q3

REPORT INFORMATION
  Report Type: 
  Country: None (occurrence: None)
  Receive Date: 20110806
  Receipt Date: 20110427
  Transmission Date: 20111222
  Serious: No
  Sender: FDA-Public Use
  Company Number: US-ABBOTT-11P-163-0721909-00

PATIENT
  Sex: Female
  Weight: 104.42 kg

DRUGS (20)
  1. NIASPAN [Suspect]
     Dosage: TWO TABLES EVERY NIGHT
     Dates: start: 20110422
  2. EAR DROPS [Concomitant]
     Indication: PRODUCT USED FOR UNKNOWN INDICATION
  3. LECITHIN [Concomitant]
     Indication: PRODUCT USED FOR UNKNOWN INDICATION
  4. FISH OIL [Concomitant]
     Indication: PRODUCT USED FOR UNKNOWN INDICATION
  5. PLAVIX [Concomitant]
     Indication: PRODUCT USED FOR UNKNOWN INDICATION
  6. LISINOPRIL [Concomitant]
     Indication: PRODUCT USED FOR UNKNOWN INDICATION
  7. K+ [Concomitant]
     Indication: PRODUCT USED FOR UNKNOWN INDICATION
  8. ASCORBIC ACID [Concomitant]
     Indication: PRODUCT USED FOR UNKNOWN INDICATION
  9. CELENIUM [Concomitant]
     Indication: PRODUCT USED FOR UNKNOWN INDICATION
  10. ASPIRIN [Concomitant]
     Indication: PRODUCT USED FOR UNKNOWN INDICATION
     Dosage: EVERY NIGHT
  11. METOPROLOL TARTRATE [Concomitant]
     Indication: PRODUCT USED FOR UNKNOWN INDICATION
  12. HYDROCODONE [Concomitant]
     Indication: PRODUCT USED FOR UNKNOWN INDICATION
  13. NIASPAN [Suspect]
     Indication: STENT PLACEMENT
     Dates: end: 20110422
  14. ANTARA (MICRONIZED) [Concomitant]
     Indication: PRODUCT USED FOR UNKNOWN INDICATION
  15. FUROSEMIDE [Concomitant]
     Indication: PRODUCT USED FOR UNKNOWN INDICATION
  16. CRESTOR [Concomitant]
     Indication: PRODUCT USED FOR UNKNOWN INDICATION
  17. VITAMIN B-12 [Concomitant]
     Indication: PRODUCT USED FOR UNKNOWN INDICATION
  18. SILVER CENTRUM [Concomitant]
     Indication: PRODUCT USED FOR UNKNOWN INDICATION
  19. CARVEDILOL [Concomitant]
     Indication: PRODUCT USED FOR UNKNOWN INDICATION
  20. VITAMIN D [Concomitant]
     Indication: PRODUCT USED FOR UNKNOWN INDICATION

REACTIONS (8)
  - SCAB [None]
  - FEELING HOT [None]
  - PAIN [None]
  - BACK PAIN [None]
  - LIP BLISTER [None]
  - PRURITUS [None]
  - FLUSHING [None]
  - OROPHARYNGEAL BLISTERING [None]
